FAERS Safety Report 20560306 (Version 2)
Quarter: 2022Q1

REPORT INFORMATION
  Report Type: Spontaneous
  Country: US (occurrence: US)
  Receive Date: 20220307
  Receipt Date: 20220315
  Transmission Date: 20220423
  Serious: No
  Sender: FDA-Public Use
  Company Number: US-SANOFI-00996367

PATIENT
  Sex: Female

DRUGS (1)
  1. LANTUS SOLOSTAR [Suspect]
     Active Substance: INSULIN GLARGINE

REACTIONS (6)
  - Arthritis [Unknown]
  - Skin swelling [Unknown]
  - Contusion [Unknown]
  - Injury associated with device [Unknown]
  - Pain [Unknown]
  - Device issue [Unknown]
